FAERS Safety Report 16316869 (Version 1)
Quarter: 2019Q2

REPORT INFORMATION
  Report Type: Spontaneous
  Country: CN (occurrence: CN)
  Receive Date: 20190515
  Receipt Date: 20190515
  Transmission Date: 20190711
  Serious: Yes (Other)
  Sender: FDA-Public Use
  Company Number: CN-BAXTER-2019BAX009360

PATIENT
  Age: 52 Year
  Sex: Female
  Weight: 60 kg

DRUGS (14)
  1. ENDOXAN [Suspect]
     Active Substance: CYCLOPHOSPHAMIDE
     Indication: BREAST CANCER
     Dosage: DOSAGE FORM: INJECTION, CYCLOPHOSPHAMIDE + SODIUM  CHLORIDE
     Route: 041
     Dates: start: 20190420, end: 20190420
  2. ENDOXAN [Suspect]
     Active Substance: CYCLOPHOSPHAMIDE
     Dosage: DOSAGE FORM: INJECTION, CYCLOPHOSPHAMIDE + SODIUM  CHLORIDE, DOSE RE-INTRODUCED
     Route: 041
  3. DOXORUBICIN HYDROCHLORIDE LIPOSOME [Suspect]
     Active Substance: DOXORUBICIN HYDROCHLORIDE
     Dosage: DOXORUBICIN HYDROCHLORIDE LIPOSOME + 5% GLUCOSE, DOSE RE-INTRODUCED
     Route: 041
  4. GLUCOSE [Suspect]
     Active Substance: DEXTROSE
     Indication: MEDICATION DILUTION
     Dosage: DOXORUBICIN HYDROCHLORIDE LIPOSOME + 5% GLUCOSE
     Route: 041
     Dates: start: 20190420, end: 20190420
  5. PULUOLIN [Concomitant]
     Indication: PROPHYLAXIS
     Dosage: BEFORE CHEMOTHERAPY, PULUOLIN + SODIUM CHLORIDE INJECTION
     Route: 041
     Dates: start: 20190420, end: 20190420
  6. RANITIDINE HYDROCHLORIDE. [Concomitant]
     Active Substance: RANITIDINE HYDROCHLORIDE
     Indication: PROPHYLAXIS
     Dosage: BEFORE CHEMOTHERAPY, RANITIDINE HYDROCHLORIDE + SODIUM CHLORIDE
     Route: 042
     Dates: start: 20190420, end: 20190420
  7. DEXAMETHASONE SODIUM PHOSPHATE. [Concomitant]
     Active Substance: DEXAMETHASONE SODIUM PHOSPHATE
     Indication: PROPHYLAXIS
     Dosage: BEFORE CHEMOTHERAPY
     Route: 042
     Dates: start: 20190420, end: 20190420
  8. DOXORUBICIN HYDROCHLORIDE LIPOSOME [Suspect]
     Active Substance: DOXORUBICIN HYDROCHLORIDE
     Indication: BREAST CANCER
     Dosage: DOXORUBICIN HYDROCHLORIDE LIPOSOME + 5% GLUCOSE
     Route: 041
     Dates: start: 20190420, end: 20190420
  9. SODIUM CHLORIDE. [Suspect]
     Active Substance: SODIUM CHLORIDE
     Indication: MEDICATION DILUTION
     Dosage: CYCLOPHOSPHAMIDE + SODIUM  CHLORIDE
     Route: 041
     Dates: start: 20190420, end: 20190420
  10. SODIUM CHLORIDE. [Concomitant]
     Active Substance: SODIUM CHLORIDE
     Indication: MEDICATION DILUTION
     Dosage: BEFORE CHEMOTHERAPY, PULUOLIN + SODIUM CHLORIDE INJECTION
     Route: 041
     Dates: start: 20190420, end: 20190420
  11. SODIUM CHLORIDE. [Concomitant]
     Active Substance: SODIUM CHLORIDE
     Indication: MEDICATION DILUTION
     Dosage: BEFORE CHEMOTHERAPY, RANITIDINE HYDROCHLORIDE + SODIUM CHLORIDE
     Route: 042
     Dates: start: 20190420, end: 20190420
  12. GLUCOSE [Suspect]
     Active Substance: DEXTROSE
     Dosage: DOXORUBICIN HYDROCHLORIDE LIPOSOME + 5% GLUCOSE, DOSE RE-INTRODUCED
     Route: 041
  13. PROMETHAZINE HYDROCHLORIDE. [Concomitant]
     Active Substance: PROMETHAZINE HYDROCHLORIDE
     Indication: PROPHYLAXIS
     Dosage: BEFORE CHEMOTHERAPY
     Route: 030
     Dates: start: 20190420, end: 20190420
  14. SODIUM CHLORIDE. [Suspect]
     Active Substance: SODIUM CHLORIDE
     Dosage: CYCLOPHOSPHAMIDE + SODIUM  CHLORIDE, DOSE RE-INTRODUCED
     Route: 041

REACTIONS (4)
  - Chest discomfort [Recovered/Resolved]
  - Tachypnoea [Recovered/Resolved]
  - Tachycardia [Recovered/Resolved]
  - Dyspnoea [Recovered/Resolved]

NARRATIVE: CASE EVENT DATE: 20190420
